FAERS Safety Report 9247548 (Version 2)
Quarter: 2013Q2

REPORT INFORMATION
  Report Type: Report from Study
  Country: AU (occurrence: AU)
  Receive Date: 20130423
  Receipt Date: 20130528
  Transmission Date: 20140414
  Serious: Yes (Hospitalization)
  Sender: FDA-Public Use
  Company Number: PHHY2013AU038673

PATIENT
  Age: 38 Year
  Sex: Male

DRUGS (2)
  1. CLOZARIL [Suspect]
     Indication: SCHIZOPHRENIA
     Dosage: 400 MG,
     Dates: start: 20030822, end: 20130513
  2. CLOZARIL [Suspect]
     Dosage: 500 MG,
     Dates: start: 20130517

REACTIONS (7)
  - Infection [Recovered/Resolved]
  - Neutrophil count increased [Recovered/Resolved]
  - White blood cell count increased [Recovered/Resolved]
  - Psychotic disorder [Recovering/Resolving]
  - Thinking abnormal [Recovering/Resolving]
  - Paranoia [Recovering/Resolving]
  - Antipsychotic drug level decreased [Unknown]
